FAERS Safety Report 8239592-3 (Version None)
Quarter: 2012Q1

REPORT INFORMATION
  Report Type: 
  Country: None (occurrence: None)
  Receive Date: 20120328
  Receipt Date: 20120320
  Transmission Date: 20120608
  Serious: Yes (Hospitalization)
  Sender: FDA-Public Use
  Company Number: US-JNJFOC-20120207211

PATIENT
  Sex: Female
  Weight: 90.72 kg

DRUGS (8)
  1. MELOXICAM [Concomitant]
     Dates: end: 20120111
  2. HYDROCHLOROTHIAZIDE [Concomitant]
  3. LIPITOR [Concomitant]
  4. ASPIRIN [Concomitant]
     Dates: end: 20120111
  5. MELOXICAM [Concomitant]
  6. LEVOTHYROXINE SODIUM [Concomitant]
  7. XARELTO [Suspect]
     Indication: KNEE ARTHROPLASTY
     Route: 065
     Dates: start: 20120119, end: 20120131
  8. RAMIPRIL [Concomitant]

REACTIONS (9)
  - RED BLOOD CELL SEDIMENTATION RATE INCREASED [None]
  - HAEMATOCRIT DECREASED [None]
  - HAEMATOMA [None]
  - INCISIONAL DRAINAGE [None]
  - INFECTION [None]
  - PLATELET COUNT INCREASED [None]
  - HAEMOGLOBIN DECREASED [None]
  - BACTERIAL TEST POSITIVE [None]
  - C-REACTIVE PROTEIN INCREASED [None]
